FAERS Safety Report 6573282-8 (Version None)
Quarter: 2010Q1

REPORT INFORMATION
  Report Type: 
  Country: None (occurrence: None)
  Receive Date: 20100208
  Receipt Date: 20100208
  Transmission Date: 20100710
  Serious: Yes (Disabling)
  Sender: FDA-Public Use
  Company Number: None

PATIENT
  Age: 57 Year
  Sex: Female
  Weight: 63.6 kg

DRUGS (1)
  1. ZICAM NASAL GEL 2X MATTRIXX INITIATIVES INC. [Suspect]
     Dosage: 1 SQUIRT PER NOSTRIL 2 PER DAY IN THE NOSE WINTER 2008
     Route: 045
     Dates: start: 20080101

REACTIONS (3)
  - ANOSMIA [None]
  - BURNING SENSATION MUCOSAL [None]
  - NO THERAPEUTIC RESPONSE [None]
